FAERS Safety Report 8509823-0 (Version None)
Quarter: 2012Q2

REPORT INFORMATION
  Report Type: 
  Country: None (occurrence: None)
  Receive Date: 20120405
  Receipt Date: 20090608
  Transmission Date: 20120825
  Serious: Yes (Life-Threatening)
  Sender: FDA-Public Use
  Company Number: PHEH2009US05835

PATIENT
  Sex: Female

DRUGS (2)
  1. RECLAST [Suspect]
     Dosage: INFUSION
     Dates: start: 20090119
  2. METHOCARBAMOL [Concomitant]

REACTIONS (2)
  - PAIN IN JAW [None]
  - GINGIVAL DISORDER [None]
